FAERS Safety Report 16834701 (Version 1)
Quarter: 2019Q3

REPORT INFORMATION
  Report Type: Spontaneous
  Country: ES (occurrence: ES)
  Receive Date: 20190920
  Receipt Date: 20190920
  Transmission Date: 20191005
  Serious: Yes (Death, Hospitalization)
  Sender: FDA-Public Use
  Company Number: ES-BAUSCH-BL-2019-025762

PATIENT
  Age: 90 Year
  Sex: Female

DRUGS (11)
  1. ESCITALOPRAM [Suspect]
     Active Substance: ESCITALOPRAM OXALATE
     Indication: DEPRESSION
     Route: 048
  2. FUROSEMIDA [Suspect]
     Active Substance: FUROSEMIDE
     Indication: CARDIAC FAILURE CONGESTIVE
     Route: 048
  3. IPRATROPIO BROMURO [Suspect]
     Active Substance: IPRATROPIUM BROMIDE
     Indication: CHRONIC OBSTRUCTIVE PULMONARY DISEASE
     Dosage: 2 INH EVERY 8 HOURS INHALATED
     Route: 055
  4. OMEPRAZOL [Suspect]
     Active Substance: OMEPRAZOLE
     Indication: OESOPHAGITIS
     Route: 048
  5. LISINOPRIL. [Suspect]
     Active Substance: LISINOPRIL
     Indication: HYPERTENSION
     Route: 048
  6. ALENDRONICO ACIDO (ALENDRONATE SODIUM) [Suspect]
     Active Substance: ALENDRONATE SODIUM
     Indication: OSTEOPOROSIS
     Route: 048
  7. HIERRO SULFATO (FERROUS SULFATE) [Suspect]
     Active Substance: FERROUS SULFATE
     Indication: IRON DEFICIENCY
     Route: 048
  8. BISOPROLOL [Suspect]
     Active Substance: BISOPROLOL
     Indication: ATRIAL FIBRILLATION
     Route: 048
  9. SINTROM [Suspect]
     Active Substance: ACENOCOUMAROL
     Indication: ATRIAL FIBRILLATION
     Dosage: 60 TABLETS
     Route: 048
  10. ESPIRONOLACTONA [Suspect]
     Active Substance: SPIRONOLACTONE
     Indication: HYPERTENSION
     Route: 048
  11. ALOPURINOL [Suspect]
     Active Substance: ALLOPURINOL
     Indication: HYPERURICAEMIA
     Route: 048

REACTIONS (15)
  - Amaurosis [Unknown]
  - Hyperreflexia [Unknown]
  - Thermohypoaesthesia [Unknown]
  - Muscular weakness [Unknown]
  - Cardiac failure [Fatal]
  - Respiratory tract infection [Fatal]
  - Pupillary reflex impaired [Unknown]
  - Optic ischaemic neuropathy [Unknown]
  - Multimorbidity [Unknown]
  - Extensor plantar response [Unknown]
  - Pneumonia [Fatal]
  - Neuromyelitis optica spectrum disorder [Not Recovered/Not Resolved]
  - Urinary retention [Unknown]
  - Hypoaesthesia [Unknown]
  - Sight disability [Unknown]

NARRATIVE: CASE EVENT DATE: 20150813
